FAERS Safety Report 9240952 (Version 1)
Quarter: 2013Q2

REPORT INFORMATION
  Report Type: Spontaneous
  Country: BR (occurrence: BR)
  Receive Date: 20130418
  Receipt Date: 20130418
  Transmission Date: 20140414
  Serious: Yes (Other)
  Sender: FDA-Public Use
  Company Number: BR-AMGEN-BRASP2013026305

PATIENT
  Age: 51 Year
  Sex: Male
  Weight: 120 kg

DRUGS (7)
  1. ENBREL [Suspect]
     Indication: PSORIASIS
     Dosage: 50 MG, 1X/WEEK
     Route: 058
     Dates: start: 201204, end: 201301
  2. ATENOLOL [Concomitant]
     Dosage: STRENGTH 50MG, ONE TABLET, TWICE A DAY
     Route: 048
  3. SIMVASTATIN [Concomitant]
     Dosage: STRENGTH 20MG, ONE TABLET ONCE A DAY
     Route: 048
  4. SUSTRATE [Concomitant]
     Dosage: STRENGTH 10MG, ONE TABLET TWICE A DAY
     Route: 048
  5. HYDROCHLOROTHIAZIDE [Concomitant]
     Dosage: STRENGTH 25MG, ONE TABLET ONCE A DAY
     Route: 048
  6. LOSARTAN [Concomitant]
     Dosage: STRENGTH 50MG, ONE TABLET ONCE A DAY
     Route: 048
  7. METFORMIN HYDROCHLORIDE [Concomitant]
     Dosage: STRENGTH 50MG, TWO TABLETS TWICE A DAY
     Route: 048

REACTIONS (1)
  - Liver injury [Unknown]
